FAERS Safety Report 4520949-9 (Version None)
Quarter: 2004Q4

REPORT INFORMATION
  Report Type: 
  Country: None (occurrence: None)
  Receive Date: 20041206
  Receipt Date: 20041130
  Transmission Date: 20050328
  Serious: Yes (Hospitalization)
  Sender: FDA-Public Use
  Company Number: IT-JNJFOC-20041200029

PATIENT
  Age: 53 Year
  Sex: Male

DRUGS (1)
  1. IBUPROFEN [Suspect]
     Indication: ARTHRALGIA
     Dosage: 2400-3600 MG/DAY

REACTIONS (4)
  - DRUG ABUSER [None]
  - NECROSIS [None]
  - RENAL FAILURE [None]
  - URINARY BLADDER ADENOMA [None]
